FAERS Safety Report 7556591-5 (Version None)
Quarter: 2011Q2

REPORT INFORMATION
  Report Type: 
  Country: None (occurrence: None)
  Receive Date: 20110616
  Receipt Date: 20110616
  Transmission Date: 20111010
  Serious: Yes (Hospitalization)
  Sender: FDA-Public Use
  Company Number: None

PATIENT
  Age: 22 Year
  Sex: Female
  Weight: 89 kg

DRUGS (2)
  1. PRIVIGEN [Suspect]
     Indication: ENCEPHALITIS ALLERGIC
     Dosage: 90 GRAMS DAILY IV
     Route: 042
     Dates: start: 20110530, end: 20110601
  2. PRIVIGEN [Suspect]
     Indication: CONDITION AGGRAVATED
     Dosage: 90 GRAMS DAILY IV
     Route: 042
     Dates: start: 20110530, end: 20110601

REACTIONS (1)
  - HAEMOLYTIC ANAEMIA [None]
